FAERS Safety Report 21961622 (Version 2)
Quarter: 2023Q1

REPORT INFORMATION
  Report Type: Spontaneous
  Country: DE (occurrence: DE)
  Receive Date: 20230207
  Receipt Date: 20230324
  Transmission Date: 20230417
  Serious: Yes (Other)
  Sender: FDA-Public Use
  Company Number: DE-002147023-NVSC2023DE005294

PATIENT
  Sex: Male

DRUGS (3)
  1. CERTICAN [Suspect]
     Active Substance: EVEROLIMUS
     Indication: Renal transplant
     Dosage: 0.75 MG, BID (SERIAL NUMBER: 04150017547060)
     Route: 048
     Dates: start: 2017
  2. CERTICAN [Suspect]
     Active Substance: EVEROLIMUS
     Dosage: 0.75 MG, BID (1 MONTH AGO) (SERIAL NUMBER: XFHSTY3C6CDT7F84)
     Route: 048
     Dates: start: 20221212
  3. CERTICAN [Suspect]
     Active Substance: EVEROLIMUS
     Dosage: 0.75 MG, BID (END OF THERAPY)
     Route: 048
     Dates: start: 20230104

REACTIONS (4)
  - Acute myocardial infarction [Unknown]
  - Pain in extremity [Recovered/Resolved]
  - Rash [Recovering/Resolving]
  - Cough [Recovered/Resolved]

NARRATIVE: CASE EVENT DATE: 20190101
